FAERS Safety Report 12203444 (Version 1)
Quarter: 2016Q1

REPORT INFORMATION
  Report Type: Report from Study
  Country: AR (occurrence: AR)
  Receive Date: 20160323
  Receipt Date: 20160323
  Transmission Date: 20160526
  Serious: Yes (Death, Hospitalization)
  Sender: FDA-Public Use
  Company Number: PHHY2015AR164355

PATIENT
  Age: 63 Year
  Sex: Female

DRUGS (1)
  1. AFINITOR [Suspect]
     Active Substance: EVEROLIMUS
     Indication: BREAST CANCER
     Dosage: UNK
     Route: 065
     Dates: start: 20150915, end: 201510

REACTIONS (8)
  - Agitation [Recovering/Resolving]
  - Hyperventilation [Recovering/Resolving]
  - Cardiogenic shock [Fatal]
  - Dyspnoea [Recovering/Resolving]
  - Malignant neoplasm progression [Fatal]
  - Metastases to lung [Not Recovered/Not Resolved]
  - Speech disorder [Recovering/Resolving]
  - Depression [Unknown]

NARRATIVE: CASE EVENT DATE: 201510
